FAERS Safety Report 7682884-7 (Version None)
Quarter: 2011Q3

REPORT INFORMATION
  Report Type: 
  Country: None (occurrence: None)
  Receive Date: 20110815
  Receipt Date: 20110803
  Transmission Date: 20111222
  Serious: Yes (Hospitalization, Disabling)
  Sender: FDA-Public Use
  Company Number: US-JNJFOC-20110603038

PATIENT
  Sex: Female
  Weight: 46.6 kg

DRUGS (17)
  1. HUMIRA [Concomitant]
     Dates: start: 20110511
  2. SALICYLIC ACID [Concomitant]
  3. REMICADE [Suspect]
     Indication: CROHN'S DISEASE
     Route: 042
     Dates: start: 20081203
  4. REMICADE [Suspect]
     Route: 042
     Dates: start: 20110209, end: 20110209
  5. HUMIRA [Concomitant]
     Dates: start: 20110525
  6. BENTYL [Concomitant]
  7. HUMIRA [Concomitant]
     Indication: CROHN'S DISEASE
     Dates: start: 20110426
  8. PROBIOTICS [Concomitant]
  9. TRIAMCINOLONE [Concomitant]
  10. ZYRTEC [Concomitant]
  11. BACTROBAN [Concomitant]
     Route: 061
  12. CLIOQUINOL [Concomitant]
     Route: 061
  13. PRILOSEC [Concomitant]
  14. PROZAC [Concomitant]
  15. MESALAMINE [Concomitant]
     Route: 048
  16. METHOTREXATE [Concomitant]
  17. ZANTAC [Concomitant]

REACTIONS (1)
  - CROHN'S DISEASE [None]
